FAERS Safety Report 16472523 (Version 1)
Quarter: 2019Q2

REPORT INFORMATION
  Report Type: Spontaneous
  Country: FR (occurrence: FR)
  Receive Date: 20190625
  Receipt Date: 20190625
  Transmission Date: 20190711
  Serious: Yes (Death)
  Sender: FDA-Public Use
  Company Number: FR-ACCORD-134866

PATIENT
  Age: 51 Year
  Sex: Male
  Weight: 61 kg

DRUGS (6)
  1. OPDIVO [Suspect]
     Active Substance: NIVOLUMAB
     Indication: SQUAMOUS CELL CARCINOMA
     Dosage: DATE OF LAST ADMINISTRATION 14-MAR-2019
     Route: 042
     Dates: start: 20190117
  2. CARBOPLATINE ACCORD [Suspect]
     Active Substance: CARBOPLATIN
     Indication: SQUAMOUS CELL CARCINOMA
     Dosage: DATE OF LAST ADMINISTRATION 25-APR-2019
     Route: 042
     Dates: start: 20190329
  3. PANTOPRAZOLE [Concomitant]
     Active Substance: PANTOPRAZOLE
     Route: 048
  4. DOCETAXEL ACCORD [Suspect]
     Active Substance: DOCETAXEL
     Indication: SQUAMOUS CELL CARCINOMA
     Dosage: DATE OF LAST ADMINISTRATION 25-APR-2019
     Route: 042
     Dates: start: 20190329
  5. CORTANCYL [Concomitant]
     Active Substance: PREDNISONE
     Route: 048
  6. OXYCODONE/OXYCODONE HYDROCHLORIDE/OXYCODONE PECTINATE/OXYCODONE TEREPHTHALATE [Concomitant]
     Route: 048

REACTIONS (1)
  - Cardiogenic shock [Fatal]

NARRATIVE: CASE EVENT DATE: 20190429
